FAERS Safety Report 11645944 (Version 1)
Quarter: 2015Q4

REPORT INFORMATION
  Report Type: Spontaneous
  Country: US (occurrence: US)
  Receive Date: 20151020
  Receipt Date: 20151020
  Transmission Date: 20160304
  Serious: No
  Sender: FDA-Public Use
  Company Number: US-ROCHE-1601773

PATIENT
  Age: 78 Year
  Sex: Male
  Weight: 84.44 kg

DRUGS (6)
  1. ESBRIET [Suspect]
     Active Substance: PIRFENIDONE
     Indication: IDIOPATHIC PULMONARY FIBROSIS
     Dosage: THREE CAPSULES THREE TIMES A DAY
     Route: 048
     Dates: start: 20150212
  2. ALLOPURINOL. [Concomitant]
     Active Substance: ALLOPURINOL
     Route: 048
  3. ESBRIET [Suspect]
     Active Substance: PIRFENIDONE
     Route: 048
     Dates: start: 201501, end: 201507
  4. SIMVASTATIN. [Concomitant]
     Active Substance: SIMVASTATIN
     Route: 048
  5. TAMSULOSIN [Concomitant]
     Active Substance: TAMSULOSIN
     Route: 048
  6. ASA [Concomitant]
     Active Substance: ASPIRIN
     Route: 048

REACTIONS (1)
  - Rash [Recovering/Resolving]

NARRATIVE: CASE EVENT DATE: 201506
